FAERS Safety Report 5674224-X (Version None)
Quarter: 2008Q1

REPORT INFORMATION
  Report Type: 
  Country: None (occurrence: None)
  Receive Date: 20080320
  Receipt Date: 20080312
  Transmission Date: 20080703
  Serious: Yes (Other)
  Sender: FDA-Public Use
  Company Number: US-ROCHE-552939

PATIENT
  Age: 65 Year
  Sex: Female

DRUGS (8)
  1. BONIVA [Suspect]
     Indication: OSTEOPOROSIS
     Route: 065
     Dates: start: 20070620
  2. TOPROL-XL [Concomitant]
  3. LEVOTHYROXINE SODIUM [Concomitant]
  4. FISH OIL [Concomitant]
  5. CENTRUM SILVER [Concomitant]
  6. CALCIUM [Concomitant]
  7. MAGNESIUM [Concomitant]
  8. ZINC [Concomitant]

REACTIONS (1)
  - THYROID NEOPLASM [None]
